FAERS Safety Report 24104771 (Version 1)
Quarter: 2024Q3

REPORT INFORMATION
  Report Type: Spontaneous
  Country: SE (occurrence: SE)
  Receive Date: 20240717
  Receipt Date: 20240717
  Transmission Date: 20241017
  Serious: Yes (Disabling)
  Sender: PFIZER
  Company Number: None

PATIENT
  Age: 58 Year
  Sex: Male

DRUGS (4)
  1. LONITEN [Suspect]
     Active Substance: MINOXIDIL
     Indication: Hypertension
     Dosage: 7.5 MG, 2X/DAY (EVERY 0.5 DAY)
  2. FUROSEMIDE [Concomitant]
     Active Substance: FUROSEMIDE
     Dosage: 40 MG, 3X/DAY (2 IN THE MORNING, 1 AT LUNCH)
  3. DOXAZOSIN [Concomitant]
     Active Substance: DOXAZOSIN MESYLATE
     Dosage: 8 MG, DAILY
  4. DAPAGLIFLOZIN [Concomitant]
     Active Substance: DAPAGLIFLOZIN
     Dosage: 10 MG, DAILY

REACTIONS (3)
  - Oedema [Unknown]
  - Dyspnoea [Unknown]
  - Weight increased [Unknown]
